FAERS Safety Report 5533155-6 (Version None)
Quarter: 2007Q4

REPORT INFORMATION
  Report Type: 
  Country: None (occurrence: None)
  Receive Date: 20071129
  Receipt Date: 20071129
  Transmission Date: 20080405
  Serious: Yes (Life-Threatening)
  Sender: FDA-Public Use
  Company Number: None

PATIENT
  Sex: Male
  Weight: 79 kg

DRUGS (15)
  1. CISPLATIN [Suspect]
     Indication: OESOPHAGEAL CANCER METASTATIC
     Dosage: 25MG/MG2 IV BOLUS
     Route: 040
     Dates: start: 20070228, end: 20071113
  2. IRINOTECAN HCL [Suspect]
     Indication: OESOPHAGEAL CANCER METASTATIC
     Dosage: 50MG/M2 IV BOLUS DOSE REDUCED TO 37.5MGM2 ON 11/6/07
     Route: 040
     Dates: start: 20070228, end: 20071113
  3. DOCETAXEL [Suspect]
     Indication: OESOPHAGEAL CANCER METASTATIC
     Dosage: 30MG/M2 IV BOLUS
     Route: 040
     Dates: start: 20070228, end: 20071113
  4. BEVACIZUMAB D1 OF 21D CYCLE [Suspect]
     Indication: OESOPHAGEAL CANCER METASTATIC
     Dosage: 10MG/M2 IV BOLUS
     Route: 040
     Dates: start: 20070228, end: 20071106
  5. ASPIRIN [Concomitant]
  6. DECADRON [Concomitant]
  7. DTO [Concomitant]
  8. FERROUS SULFATE TAB [Concomitant]
  9. IMODIUM A-D [Concomitant]
  10. LIPITOR [Concomitant]
  11. LISINOPRIL [Concomitant]
  12. PERIDEX [Concomitant]
  13. PROTONIX [Concomitant]
  14. SALINE NASAL SPRAY [Concomitant]
  15. ZOFRAN [Concomitant]

REACTIONS (6)
  - HEADACHE [None]
  - NASAL SEPTUM PERFORATION [None]
  - OSTEONECROSIS [None]
  - RHINORRHOEA [None]
  - SINUS CONGESTION [None]
  - SOFT TISSUE NECROSIS [None]
